FAERS Safety Report 9795947 (Version 2)
Quarter: 2014Q1

REPORT INFORMATION
  Report Type: Report from Study
  Country: CN (occurrence: CN)
  Receive Date: 20140103
  Receipt Date: 20140129
  Transmission Date: 20141002
  Serious: Yes (Other)
  Sender: FDA-Public Use
  Company Number: CN-BAYER-2013-156859

PATIENT
  Age: 31 Year
  Sex: Female
  Weight: 50 kg

DRUGS (1)
  1. DIENOGEST 0/2/3/0MG + ESTRADIOL VALERATE 3/2/2/1MG [Suspect]
     Indication: CONTRACEPTION
     Dosage: 1 UNK, UNK
     Route: 048
     Dates: start: 20130203, end: 20130529

REACTIONS (1)
  - Deafness unilateral [Recovered/Resolved]
